FAERS Safety Report 23107904 (Version 1)
Quarter: 2023Q4

REPORT INFORMATION
  Report Type: Other
  Country: US (occurrence: US)
  Receive Date: 20231026
  Receipt Date: 20231026
  Transmission Date: 20240109
  Serious: Yes (Other)
  Sender: FDA-Public Use
  Company Number: US-ALVOGEN-2023092455

PATIENT
  Age: 43 Year
  Sex: Male

DRUGS (2)
  1. METHOTREXATE [Suspect]
     Active Substance: METHOTREXATE
     Indication: Seronegative arthritis
     Dosage: 15 MONTHS AFTER RE-INITIATING PEMBROLIZUMAB, ORAL METHOTREXATE AT 15 MG WEEKLY
     Route: 048
  2. PEMBROLIZUMAB [Suspect]
     Active Substance: PEMBROLIZUMAB
     Indication: Hodgkin^s disease
     Dosage: 30?MONTHS AFTER CESSATION OF ANTI-PD-1 THERAPY,  GEMCITABINE PLUS PEMBROLIZUMAB WAS INITIATED.

REACTIONS (9)
  - Hodgkin^s disease [Recovering/Resolving]
  - Disease progression [Recovering/Resolving]
  - Concomitant drug effect decreased [Unknown]
  - Bone lesion [Recovering/Resolving]
  - Blood lactate dehydrogenase increased [Recovered/Resolved]
  - Leukocytosis [Recovered/Resolved]
  - Night sweats [Recovered/Resolved]
  - Lymphadenopathy [Recovering/Resolving]
  - Off label use [Unknown]
